FAERS Safety Report 5877213-5 (Version None)
Quarter: 2008Q3

REPORT INFORMATION
  Report Type: 
  Country: None (occurrence: None)
  Receive Date: 20080910
  Receipt Date: 20080829
  Transmission Date: 20090109
  Serious: Yes (Death)
  Sender: FDA-Public Use
  Company Number: SE-PFIZER INC-2008072731

PATIENT
  Sex: Male

DRUGS (16)
  1. HYDROCORTISONE TAB [Suspect]
     Dates: start: 20080213, end: 20080213
  2. PROPOFOL [Suspect]
     Indication: MYOCLONUS
     Route: 042
     Dates: start: 20080212, end: 20080213
  3. NORADRENALINE [Suspect]
  4. DOBUTREX [Suspect]
  5. VALPROATE SODIUM [Concomitant]
  6. ACTRAPID [Concomitant]
     Route: 058
  7. ATROVENT [Concomitant]
  8. FENTANYL [Concomitant]
  9. PLAVIX [Concomitant]
     Route: 048
  10. BENSYLPENICILLIN [Concomitant]
  11. VENTOLIN [Concomitant]
  12. FURIX [Concomitant]
  13. MIDAZOLAM HCL [Concomitant]
  14. POTASSIUM CHLORIDE [Concomitant]
  15. ASPIRIN [Concomitant]
     Route: 048
  16. NEXIUM [Concomitant]
     Route: 048

REACTIONS (2)
  - ACIDOSIS [None]
  - RHABDOMYOLYSIS [None]
